FAERS Safety Report 21727159 (Version 1)
Quarter: 2022Q4

REPORT INFORMATION
  Report Type: Report from Study
  Country: DE (occurrence: DE)
  Receive Date: 20221214
  Receipt Date: 20221214
  Transmission Date: 20230113
  Serious: Yes (Death)
  Sender: FDA-Public Use
  Company Number: DE-CATALYSTPHARMACEUTICALPARTNERS-DE-CATA-22-02724

PATIENT

DRUGS (4)
  1. AMIFAMPRIDINE [Suspect]
     Active Substance: AMIFAMPRIDINE
     Indication: Myasthenic syndrome
     Dosage: UNKOWN
     Route: 048
  2. PREGABALIN [Suspect]
     Active Substance: PREGABALIN
     Indication: Myasthenic syndrome
     Dosage: UNKOWN
  3. ACETAMINOPHEN [Suspect]
     Active Substance: ACETAMINOPHEN
     Indication: Myasthenic syndrome
     Dosage: UNKOWN
  4. TRAMADOL [Suspect]
     Active Substance: TRAMADOL
     Indication: Myasthenic syndrome
     Dosage: UNKOWN

REACTIONS (1)
  - Cardio-respiratory arrest [Fatal]
